FAERS Safety Report 6477723-6 (Version None)
Quarter: 2009Q4

REPORT INFORMATION
  Report Type: 
  Country: None (occurrence: None)
  Receive Date: 20091119
  Receipt Date: 20091013
  Transmission Date: 20100525
  Serious: Yes (Other)
  Sender: FDA-Public Use
  Company Number: 2009-192723-NL

PATIENT
  Age: 34 Year
  Sex: Female

DRUGS (3)
  1. IMPLANON [Suspect]
     Indication: CONTRACEPTION
     Dates: start: 20020401, end: 20050201
  2. IMPLANON [Suspect]
     Indication: CONTRACEPTION
     Dates: start: 20061016, end: 20061022
  3. IMPLANON [Suspect]

REACTIONS (24)
  - ADJUSTMENT DISORDER [None]
  - BURNING SENSATION [None]
  - COMPLEX REGIONAL PAIN SYNDROME [None]
  - DEPRESSION [None]
  - DEVICE BREAKAGE [None]
  - DRUG INEFFECTIVE [None]
  - DYSTHYMIC DISORDER [None]
  - ECONOMIC PROBLEM [None]
  - FAMILY STRESS [None]
  - GENERAL PHYSICAL HEALTH DETERIORATION [None]
  - IMPAIRED WORK ABILITY [None]
  - IMPLANT SITE HAEMATOMA [None]
  - INJURY [None]
  - LOSS OF LIBIDO [None]
  - MOBILITY DECREASED [None]
  - MUSCULOSKELETAL PAIN [None]
  - OVERWEIGHT [None]
  - PANIC ATTACK [None]
  - PSYCHOGENIC PAIN DISORDER [None]
  - SELF ESTEEM DECREASED [None]
  - SENSATION OF FOREIGN BODY [None]
  - SOCIAL AVOIDANT BEHAVIOUR [None]
  - UNEMPLOYMENT [None]
  - WEIGHT INCREASED [None]
